FAERS Safety Report 12116555 (Version 2)
Quarter: 2016Q2

REPORT INFORMATION
  Report Type: Spontaneous
  Country: DE (occurrence: DE)
  Receive Date: 20160225
  Receipt Date: 20160504
  Transmission Date: 20160815
  Serious: Yes (Life-Threatening, Hospitalization, Other)
  Sender: FDA-Public Use
  Company Number: DE-TEVA-635689GER

PATIENT
  Age: 82 Year
  Sex: Female

DRUGS (1)
  1. RAMIPRIL COMP 5/25 [Suspect]
     Active Substance: HYDROCHLOROTHIAZIDE\RAMIPRIL
     Indication: POLYURIA
     Dosage: 0.5 TABLET IN THE EVENING; CONTAINS 5MG RAMIPRIL AND 25MG HYDROCHLOROTHIAZIDE
     Route: 048

REACTIONS (5)
  - Pharyngeal oedema [Recovered/Resolved with Sequelae]
  - Angioedema [Not Recovered/Not Resolved]
  - Cardiac arrest [Recovered/Resolved with Sequelae]
  - Loss of consciousness [Recovered/Resolved with Sequelae]
  - Resuscitation [Not Recovered/Not Resolved]

NARRATIVE: CASE EVENT DATE: 20151223
